FAERS Safety Report 19099167 (Version 8)
Quarter: 2024Q3

REPORT INFORMATION
  Report Type: Report from Study
  Country: US (occurrence: US)
  Receive Date: 20210406
  Receipt Date: 20240903
  Transmission Date: 20241017
  Serious: Yes (Other)
  Sender: TAKEDA
  Company Number: US-TAKEDA-2021TUS020956

PATIENT
  Age: 58 Year
  Sex: Female

DRUGS (3)
  1. HUMAN IMMUNOGLOBULIN G [Suspect]
     Active Substance: HUMAN IMMUNOGLOBULIN G
     Indication: Hypogammaglobulinaemia
     Dosage: 30 GRAM, MONTHLY
     Route: 042
  2. HUMAN IMMUNOGLOBULIN G [Suspect]
     Active Substance: HUMAN IMMUNOGLOBULIN G
     Indication: Primary immunodeficiency syndrome
     Dosage: 30 GRAM
     Route: 042
  3. FORTEO [Suspect]
     Active Substance: TERIPARATIDE
     Indication: Osteoporosis
     Dosage: UNK
     Route: 065

REACTIONS (15)
  - Cerebrospinal fluid leakage [Not Recovered/Not Resolved]
  - Narcolepsy [Unknown]
  - Infection [Unknown]
  - Heart rate irregular [Unknown]
  - Joint swelling [Unknown]
  - Cardiac disorder [Unknown]
  - Sleep disorder [Unknown]
  - COVID-19 [Recovered/Resolved]
  - Tinnitus [Unknown]
  - Osteoporosis [Unknown]
  - Sensitivity to weather change [Unknown]
  - Incorrect drug administration rate [Unknown]
  - Insomnia [Unknown]
  - Tachycardia [Unknown]
  - Migraine [Unknown]

NARRATIVE: CASE EVENT DATE: 20230701
